FAERS Safety Report 11913220 (Version 1)
Quarter: 2016Q1

REPORT INFORMATION
  Report Type: Spontaneous
  Country: US (occurrence: US)
  Receive Date: 20160113
  Receipt Date: 20160113
  Transmission Date: 20160526
  Serious: No
  Sender: FDA-Public Use
  Company Number: US-WATSON-2015-01908

PATIENT
  Sex: Female

DRUGS (1)
  1. TRIVORA [Suspect]
     Active Substance: ETHINYL ESTRADIOL\LEVONORGESTREL
     Indication: PRODUCT USED FOR UNKNOWN INDICATION

REACTIONS (2)
  - Menorrhagia [Unknown]
  - Drug administration error [Unknown]
